FAERS Safety Report 9464949 (Version 1)
Quarter: 2013Q3

REPORT INFORMATION
  Report Type: Report from Study
  Country: US (occurrence: US)
  Receive Date: 20130819
  Receipt Date: 20130819
  Transmission Date: 20140515
  Serious: Yes (Hospitalization, Other)
  Sender: FDA-Public Use
  Company Number: US-ABBOTT-13P-163-1132677-00

PATIENT
  Age: 48 Year
  Sex: Female
  Weight: 56.75 kg

DRUGS (6)
  1. HUMIRA [Suspect]
     Indication: RHEUMATOID ARTHRITIS
     Dates: start: 2005, end: 2007
  2. PREDNISONE [Concomitant]
     Indication: RHEUMATOID ARTHRITIS
  3. MELOXICAM [Concomitant]
     Indication: COLITIS ULCERATIVE
  4. TRAMADOL [Concomitant]
     Indication: PAIN
  5. UNKNOWN ANTIDIARRHEAL [Concomitant]
     Indication: COLITIS ULCERATIVE
  6. XANAX [Concomitant]
     Indication: ANXIETY

REACTIONS (6)
  - Precancerous cells present [Recovered/Resolved]
  - Colon cancer [Recovered/Resolved]
  - Diarrhoea [Recovered/Resolved]
  - Rheumatoid arthritis [Not Recovered/Not Resolved]
  - Local swelling [Not Recovered/Not Resolved]
  - Joint swelling [Not Recovered/Not Resolved]
